FAERS Safety Report 6647127-1 (Version None)
Quarter: 2010Q1

REPORT INFORMATION
  Report Type: 
  Country: None (occurrence: None)
  Receive Date: 20100323
  Receipt Date: 20100311
  Transmission Date: 20100710
  Serious: Yes (Other)
  Sender: FDA-Public Use
  Company Number: PHEH2007US15450

PATIENT
  Sex: Male
  Weight: 89.796 kg

DRUGS (18)
  1. ZOMETA [Suspect]
     Indication: METASTASES TO BONE
     Dosage: 1 MG, QMO
     Dates: start: 20040401, end: 20060701
  2. LUPRON [Concomitant]
     Dosage: Q3MO
  3. CASODEX [Concomitant]
     Dosage: UNK
  4. ZOCOR [Concomitant]
  5. TOPROL-XL [Concomitant]
  6. LIPITOR [Concomitant]
  7. LORTAB [Concomitant]
  8. FLAGYL [Concomitant]
  9. KEFLEX [Concomitant]
  10. VIAGRA [Concomitant]
  11. CELEBREX [Concomitant]
  12. PLAVIX [Concomitant]
  13. LEVITRA [Concomitant]
     Dosage: UNK
  14. NOCTURA [Concomitant]
     Dosage: UNK
  15. PREDNISONE TAB [Concomitant]
  16. CHEMOTHERAPEUTICS NOS [Concomitant]
  17. NIASPAN [Concomitant]
  18. TAXOTERE [Concomitant]

REACTIONS (46)
  - ANGIOPLASTY [None]
  - ANXIETY [None]
  - ARTERIOSCLEROSIS CORONARY ARTERY [None]
  - BONE DISORDER [None]
  - CONNECTIVE TISSUE INFLAMMATION [None]
  - COUGH [None]
  - DEBRIDEMENT [None]
  - DECREASED INTEREST [None]
  - DENTAL CARIES [None]
  - DENTAL OPERATION [None]
  - DRY SKIN [None]
  - DYSPNOEA [None]
  - ENDODONTIC PROCEDURE [None]
  - EXOSTOSIS [None]
  - FATIGUE [None]
  - FISTULA DISCHARGE [None]
  - GINGIVAL HYPERPLASIA [None]
  - GYNAECOMASTIA [None]
  - INCREASED TENDENCY TO BRUISE [None]
  - INJURY [None]
  - JAW DISORDER [None]
  - JAW OPERATION [None]
  - JOINT EFFUSION [None]
  - JOINT STIFFNESS [None]
  - LOCAL SWELLING [None]
  - LOOSE TOOTH [None]
  - MASTICATION DISORDER [None]
  - METASTASES TO BONE [None]
  - MICTURITION DISORDER [None]
  - NICOTINE DEPENDENCE [None]
  - NIPPLE PAIN [None]
  - OEDEMA [None]
  - ORAL PAIN [None]
  - OSTEOMYELITIS [None]
  - OSTEONECROSIS [None]
  - OSTEOSCLEROSIS [None]
  - PAIN [None]
  - PHOTODERMATOSIS [None]
  - PRIMARY SEQUESTRUM [None]
  - RADIATION EXPOSURE [None]
  - SEXUAL DYSFUNCTION [None]
  - STENT PLACEMENT [None]
  - SWELLING [None]
  - TENDON RUPTURE [None]
  - TOOTH EXTRACTION [None]
  - TOOTH INFECTION [None]
